FAERS Safety Report 4789720-7 (Version None)
Quarter: 2005Q4

REPORT INFORMATION
  Report Type: 
  Country: None (occurrence: None)
  Receive Date: 20051006
  Receipt Date: 20050929
  Transmission Date: 20060501
  Serious: Yes (Other)
  Sender: FDA-Public Use
  Company Number: GB-BOEHRINGER INGELHEIM PHARMACEUTICALS, INC.-2005-UK-01899UK

PATIENT
  Age: 53 Year

DRUGS (4)
  1. MOBIC [Suspect]
     Indication: OSTEOARTHRITIS
     Route: 048
     Dates: start: 20050715, end: 20050820
  2. ACETAMINOPHEN W/ CODEINE [Concomitant]
     Dosage: 8/500 TT QDS  PRN
     Route: 048
  3. CELECOXIB [Concomitant]
     Indication: OSTEOARTHRITIS
     Route: 048
     Dates: start: 20050111, end: 20050711
  4. DOSULEPIN [Concomitant]
     Indication: DEPRESSION
     Route: 048

REACTIONS (1)
  - DIARRHOEA HAEMORRHAGIC [None]
